FAERS Safety Report 17493722 (Version 1)
Quarter: 2020Q1

REPORT INFORMATION
  Report Type: Spontaneous
  Country: FR (occurrence: FR)
  Receive Date: 20200304
  Receipt Date: 20200304
  Transmission Date: 20200409
  Serious: Yes (Hospitalization)
  Sender: FDA-Public Use
  Company Number: FR-ACCORD-174755

PATIENT
  Age: 88 Year
  Sex: Male
  Weight: 80 kg

DRUGS (7)
  1. MEKTOVI [Suspect]
     Active Substance: BINIMETINIB
     Indication: METASTATIC MALIGNANT MELANOMA
     Dosage: STRENGTH:  15 MG
     Route: 048
     Dates: start: 20200130, end: 20200203
  2. CANDESARTAN. [Suspect]
     Active Substance: CANDESARTAN
     Indication: HYPERTENSIVE HEART DISEASE
     Route: 048
     Dates: end: 20200203
  3. ROPINIROLE. [Concomitant]
     Active Substance: ROPINIROLE
     Route: 048
     Dates: end: 20200204
  4. BRAFTOVI [Suspect]
     Active Substance: ENCORAFENIB
     Indication: METASTATIC MALIGNANT MELANOMA
     Dosage: STRENGTH: 75 MG
     Route: 048
     Dates: start: 20200130, end: 20200203
  5. SIMVASTATIN. [Concomitant]
     Active Substance: SIMVASTATIN
     Route: 048
     Dates: end: 20200204
  6. AMIODARONE [Concomitant]
     Active Substance: AMIODARONE
     Dosage: 5 DAYS / 7
     Route: 048
  7. FUROSEMIDE. [Suspect]
     Active Substance: FUROSEMIDE
     Indication: HYPERTENSIVE HEART DISEASE
     Route: 048
     Dates: end: 20200203

REACTIONS (1)
  - Renal failure [Recovered/Resolved]
